FAERS Safety Report 18845436 (Version 2)
Quarter: 2022Q2

REPORT INFORMATION
  Report Type: Spontaneous
  Country: US (occurrence: US)
  Receive Date: 20210204
  Receipt Date: 20220421
  Transmission Date: 20220721
  Serious: No
  Sender: FDA-Public Use
  Company Number: US-PFIZER INC-2020466005

PATIENT
  Age: 81 Year
  Sex: Male

DRUGS (1)
  1. SOMAVERT [Suspect]
     Active Substance: PEGVISOMANT
     Indication: Acromegaly
     Dosage: 20 MG 3 TIMES WEEKLY
     Route: 058
     Dates: start: 20201130

REACTIONS (3)
  - Asthenia [Unknown]
  - Insulin-like growth factor decreased [Unknown]
  - Off label use [Unknown]
